FAERS Safety Report 9620049 (Version 4)
Quarter: 2017Q4

REPORT INFORMATION
  Report Type: Spontaneous
  Country: FI (occurrence: FI)
  Receive Date: 20131014
  Receipt Date: 20171212
  Transmission Date: 20180321
  Serious: Yes (Death, Other)
  Sender: FDA-Public Use
  Company Number: FI-ABBVIE-13P-055-1156117-00

PATIENT
  Age: 20 Year
  Sex: Female

DRUGS (4)
  1. VALPROATE [Suspect]
     Active Substance: VALPROIC ACID
     Indication: STATUS EPILEPTICUS
     Route: 065
  2. MIDAZOLAM [Concomitant]
     Active Substance: MIDAZOLAM HYDROCHLORIDE
     Indication: STATUS EPILEPTICUS
  3. GABAPENTIN. [Concomitant]
     Active Substance: GABAPENTIN
     Indication: STATUS EPILEPTICUS
  4. FOSPHENYTOIN [Concomitant]
     Active Substance: FOSPHENYTOIN\FOSPHENYTOIN SODIUM
     Indication: STATUS EPILEPTICUS

REACTIONS (3)
  - Status epilepticus [Fatal]
  - Coma hepatic [Fatal]
  - Hepatic failure [Fatal]
